FAERS Safety Report 20051555 (Version 3)
Quarter: 2021Q4

REPORT INFORMATION
  Report Type: Spontaneous
  Country: US (occurrence: US)
  Receive Date: 20211110
  Receipt Date: 20211222
  Transmission Date: 20220303
  Serious: No
  Sender: FDA-Public Use
  Company Number: US-GSKCCFUS-Case-01208635_AE-70762

PATIENT
  Sex: Female

DRUGS (1)
  1. ADVAIR DISKUS [Suspect]
     Active Substance: FLUTICASONE PROPIONATE\SALMETEROL XINAFOATE
     Indication: Product used for unknown indication
     Dosage: UNK UNK, QD, 250/50MCG 1X60D
     Route: 055

REACTIONS (7)
  - Malaise [Unknown]
  - Chest discomfort [Unknown]
  - Secretion discharge [Unknown]
  - Underdose [Unknown]
  - Product administration error [Unknown]
  - Drug ineffective [Unknown]
  - Product complaint [Unknown]
